FAERS Safety Report 4608830-8 (Version None)
Quarter: 2005Q1

REPORT INFORMATION
  Report Type: 
  Country: None (occurrence: None)
  Receive Date: 20050315
  Receipt Date: 20050311
  Transmission Date: 20050727
  Serious: Yes (Other)
  Sender: FDA-Public Use
  Company Number: US-GLAXOSMITHKLINE-A0549411A

PATIENT

DRUGS (2)
  1. VALTREX [Suspect]
     Dosage: 500MG PER DAY
  2. PRENATAL VITAMINS [Concomitant]

REACTIONS (2)
  - CORNEAL OPACITY [None]
  - DRUG EXPOSURE DURING PREGNANCY [None]
